FAERS Safety Report 26119133 (Version 1)
Quarter: 2025Q4

REPORT INFORMATION
  Report Type: Spontaneous
  Country: IN (occurrence: IN)
  Receive Date: 20251204
  Receipt Date: 20251204
  Transmission Date: 20260119
  Serious: Yes (Hospitalization)
  Sender: ROCHE
  Company Number: IN-ROCHE-10000446723

PATIENT
  Sex: Male

DRUGS (3)
  1. ZELBORAF [Suspect]
     Active Substance: VEMURAFENIB
     Indication: Product used for unknown indication
     Route: 065
  2. PIPERACILLIN [Concomitant]
     Active Substance: PIPERACILLIN
     Route: 042
  3. Glycerin Magsulf [Concomitant]

REACTIONS (2)
  - Blister [Unknown]
  - Cellulitis [Unknown]
